FAERS Safety Report 4567566-2 (Version None)
Quarter: 2005Q1

REPORT INFORMATION
  Report Type: 
  Country: None (occurrence: None)
  Receive Date: 20050127
  Receipt Date: 20050118
  Transmission Date: 20050727
  Serious: Yes (Hospitalization)
  Sender: FDA-Public Use
  Company Number: 2004AP06371

PATIENT
  Age: 69 Year
  Sex: Female
  Weight: 38 kg

DRUGS (23)
  1. IRESSA [Suspect]
     Indication: LUNG ADENOCARCINOMA
     Dosage: 250 MG DAILY PO
     Route: 048
     Dates: start: 20041020, end: 20041214
  2. IRESSA [Suspect]
     Indication: NON-SMALL CELL LUNG CANCER
     Dosage: 250 MG DAILY PO
     Route: 048
     Dates: start: 20041020, end: 20041214
  3. DALACIN [Concomitant]
  4. CONIEL [Concomitant]
  5. MEVALOTIN [Concomitant]
  6. MARZULENE [Concomitant]
  7. TENORMIN [Concomitant]
  8. BEPRICOR [Concomitant]
  9. BROCIN-CODEINE [Concomitant]
  10. NO MATCH [Concomitant]
  11. TERRA COTRIL [Concomitant]
  12. HIRUDOID [Concomitant]
  13. RADIATION THERAPY [Concomitant]
  14. NO MATCH [Concomitant]
  15. MEDICON [Concomitant]
  16. KETOPROFEN [Concomitant]
  17. CISPLATIN [Concomitant]
  18. MITOMYCIN C [Concomitant]
  19. VINORELBINE [Concomitant]
  20. UFT [Concomitant]
  21. KRESTIN [Concomitant]
  22. PACLITAXEL [Concomitant]
  23. CARBOPLATIN [Concomitant]

REACTIONS (7)
  - ANAEMIA [None]
  - BACK PAIN [None]
  - DIARRHOEA [None]
  - DYSPHAGIA [None]
  - GASTRIC ULCER [None]
  - RASH [None]
  - SKIN TIGHTNESS [None]
